FAERS Safety Report 4582814-0 (Version None)
Quarter: 2005Q1

REPORT INFORMATION
  Report Type: 
  Country: None (occurrence: None)
  Receive Date: 20050215
  Receipt Date: 20020325
  Transmission Date: 20050727
  Serious: Yes (Death, Other)
  Sender: FDA-Public Use
  Company Number: US-AMGEN-01110040

PATIENT
  Age: 60 Year
  Sex: Male

DRUGS (10)
  1. ETANERCEPT [Suspect]
     Indication: WEGENER'S GRANULOMATOSIS
     Route: 058
     Dates: start: 20010126, end: 20010917
  2. ETANERCEPT [Suspect]
  3. CYCLOPHOSPHAMIDE [Suspect]
  4. FOSAMAX [Concomitant]
  5. LORAZEPAM [Concomitant]
  6. CYCLOBENZAPRINE [Concomitant]
  7. TRIMETHOPRIM [Concomitant]
  8. SIMVASTATIN [Concomitant]
  9. ATENOLOL [Concomitant]
  10. PREDNISONE [Concomitant]

REACTIONS (3)
  - BILE DUCT CANCER [None]
  - BILE DUCT CANCER STAGE IV [None]
  - METASTASIS [None]
